FAERS Safety Report 23091697 (Version 9)
Quarter: 2024Q4

REPORT INFORMATION
  Report Type: Spontaneous
  Country: JP (occurrence: JP)
  Receive Date: 20231020
  Receipt Date: 20241025
  Transmission Date: 20250115
  Serious: Yes (Hospitalization, Disabling, Other)
  Sender: MERCK
  Company Number: JP-MSD-M2023-43923

PATIENT
  Age: 73 Year
  Sex: Female

DRUGS (4)
  1. KEYTRUDA [Suspect]
     Active Substance: PEMBROLIZUMAB
     Indication: Uterine cancer
     Dosage: 200 MILLIGRAM, Q3W
     Route: 041
     Dates: start: 20230928, end: 20231013
  2. KEYTRUDA [Suspect]
     Active Substance: PEMBROLIZUMAB
     Dosage: UNK
  3. LENVATINIB MESYLATE [Suspect]
     Active Substance: LENVATINIB MESYLATE
     Indication: Uterine cancer
     Dosage: 20 MILLIGRAM, QD
     Route: 048
     Dates: start: 20230928, end: 20231003
  4. LENVATINIB MESYLATE [Suspect]
     Active Substance: LENVATINIB MESYLATE
     Dosage: UNK
     Route: 048

REACTIONS (17)
  - Brain oedema [Recovered/Resolved]
  - Altered state of consciousness [Recovered/Resolved]
  - Cardiac failure [Not Recovered/Not Resolved]
  - Diabetes mellitus [Recovering/Resolving]
  - Immune-mediated hypothyroidism [Recovered/Resolved]
  - Platelet count decreased [Recovered/Resolved]
  - Immune-mediated encephalitis [Recovered/Resolved with Sequelae]
  - Immune-mediated myocarditis [Recovered/Resolved]
  - Pseudomonal sepsis [Recovered/Resolved]
  - Enterococcal sepsis [Recovered/Resolved]
  - Electrolyte imbalance [Recovered/Resolved]
  - Fall [Recovered/Resolved]
  - Anger [Recovered/Resolved]
  - Decreased activity [Unknown]
  - Dysphonia [Recovered/Resolved]
  - Dehydration [Recovering/Resolving]
  - Urinary tract infection [Unknown]

NARRATIVE: CASE EVENT DATE: 20230101
